FAERS Safety Report 6268202-X (Version None)
Quarter: 2009Q3

REPORT INFORMATION
  Report Type: 
  Country: None (occurrence: None)
  Receive Date: 20090714
  Receipt Date: 20090714
  Transmission Date: 20100115
  Serious: No
  Sender: FDA-Public Use
  Company Number: None

PATIENT
  Age: 79 Year
  Sex: Female

DRUGS (5)
  1. ENALAPRIL MALEATE [Suspect]
     Indication: HYPERTENSION
     Dosage: 2 TABLETS IN AM 047
     Dates: start: 20090401, end: 20090614
  2. CIMETIDINE [Concomitant]
  3. SIMVASTATIN [Concomitant]
  4. TYLENOL (CAPLET) [Concomitant]
  5. CALCIUM [Concomitant]

REACTIONS (2)
  - DERMATITIS [None]
  - RASH MACULAR [None]
